FAERS Safety Report 24918380 (Version 2)
Quarter: 2025Q1

REPORT INFORMATION
  Report Type: Spontaneous
  Country: US (occurrence: US)
  Receive Date: 20250203
  Receipt Date: 20250305
  Transmission Date: 20250408
  Serious: No
  Sender: PFIZER
  Company Number: US-PFIZER INC-PV202500011657

PATIENT
  Age: 7 Year
  Sex: Female
  Weight: 7.5 kg

DRUGS (1)
  1. SOMATROPIN [Suspect]
     Active Substance: SOMATROPIN
     Indication: Small for dates baby
     Dosage: 0.8 MG, DAILY
     Route: 058
     Dates: start: 20210219

REACTIONS (4)
  - Headache [Unknown]
  - Insulin-like growth factor increased [Unknown]
  - Oestradiol decreased [Unknown]
  - Product dose omission issue [Unknown]

NARRATIVE: CASE EVENT DATE: 20240329
